FAERS Safety Report 13026217 (Version 4)
Quarter: 2017Q1

REPORT INFORMATION
  Report Type: Spontaneous
  Country: US (occurrence: US)
  Receive Date: 20161214
  Receipt Date: 20170210
  Transmission Date: 20170428
  Serious: Yes (Other)
  Sender: FDA-Public Use
  Company Number: US-AUROBINDO-AUR-APU-2016-15032

PATIENT
  Sex: Female

DRUGS (1)
  1. VALGANCICLOVIR TABLET 450 MG [Suspect]
     Active Substance: VALGANCICLOVIR
     Dosage: 1 TAB/TWICE A DAY
     Route: 065
     Dates: start: 201608

REACTIONS (4)
  - Heart rate irregular [Recovered/Resolved]
  - Weight increased [Recovered/Resolved]
  - Joint swelling [Recovered/Resolved]
  - Arrhythmia [Recovered/Resolved]
